FAERS Safety Report 25612076 (Version 1)
Quarter: 2025Q3

REPORT INFORMATION
  Report Type: Spontaneous
  Country: IL (occurrence: IL)
  Receive Date: 20250728
  Receipt Date: 20250728
  Transmission Date: 20251021
  Serious: Yes (Death, Hospitalization, Other)
  Sender: AMGEN
  Company Number: IL-AMGEN-ISRSP2025147819

PATIENT

DRUGS (3)
  1. ADALIMUMAB [Suspect]
     Active Substance: ADALIMUMAB
     Indication: Psoriasis
     Route: 065
  2. ETANERCEPT [Suspect]
     Active Substance: ETANERCEPT
     Indication: Psoriasis
     Route: 065
  3. APREMILAST [Suspect]
     Active Substance: APREMILAST
     Indication: Psoriasis
     Route: 065

REACTIONS (9)
  - Liver disorder [Fatal]
  - Cardiac disorder [Fatal]
  - Death [Fatal]
  - Infection [Fatal]
  - Neoplasm malignant [Fatal]
  - Confusional state [Fatal]
  - Chronic obstructive pulmonary disease [Fatal]
  - Haemorrhage [Fatal]
  - Pneumonia [Unknown]
